FAERS Safety Report 7287905-1 (Version None)
Quarter: 2011Q1

REPORT INFORMATION
  Report Type: 
  Country: None (occurrence: None)
  Receive Date: 20110211
  Receipt Date: 20110207
  Transmission Date: 20110831
  Serious: Yes (Other)
  Sender: FDA-Public Use
  Company Number: US-PFIZER INC-2011027779

PATIENT
  Age: 79 Year
  Sex: Male

DRUGS (6)
  1. MUCOMYST [Suspect]
  2. LYRICA [Suspect]
  3. VICODIN [Suspect]
  4. TETRACYCLINE [Suspect]
  5. LEVAQUIN [Suspect]
  6. GABAPENTIN [Suspect]

REACTIONS (1)
  - HALLUCINATION [None]
